FAERS Safety Report 13521305 (Version 1)
Quarter: 2017Q2

REPORT INFORMATION
  Report Type: Spontaneous
  Country: US (occurrence: US)
  Receive Date: 20170505
  Receipt Date: 20170505
  Transmission Date: 20170830
  Serious: Yes (Other)
  Sender: FDA-Public Use
  Company Number: None

PATIENT
  Age: 52 Year
  Sex: Female
  Weight: 78.75 kg

DRUGS (11)
  1. HYDROCODONE [Concomitant]
     Active Substance: HYDROCODONE
  2. VITAMIN D [Concomitant]
     Active Substance: CHOLECALCIFEROL
  3. NALTREXONE [Suspect]
     Active Substance: NALTREXONE
     Indication: NEUROPATHY PERIPHERAL
     Dosage: ?          QUANTITY:4 TABLET(S);?
     Route: 048
     Dates: start: 20170504, end: 20170504
  4. LEVOTHYROXINE. [Concomitant]
     Active Substance: LEVOTHYROXINE
  5. OXYCONTIN [Concomitant]
     Active Substance: OXYCODONE HYDROCHLORIDE
  6. VITAMIN K [Concomitant]
     Active Substance: PHYTONADIONE
  7. CLONAZEPAM. [Concomitant]
     Active Substance: CLONAZEPAM
  8. VITAMIN A [Concomitant]
     Active Substance: VITAMIN A
  9. SPINAL STIMULATOR [Concomitant]
  10. EFFEXOR XR [Concomitant]
     Active Substance: VENLAFAXINE HYDROCHLORIDE
  11. ZINC. [Concomitant]
     Active Substance: ZINC

REACTIONS (7)
  - Tremor [None]
  - Restless legs syndrome [None]
  - Drug withdrawal syndrome [None]
  - Cold sweat [None]
  - Diarrhoea [None]
  - Vomiting [None]
  - Hyperhidrosis [None]

NARRATIVE: CASE EVENT DATE: 20160504
